FAERS Safety Report 9393164 (Version 2)
Quarter: 2013Q3

REPORT INFORMATION
  Report Type: Spontaneous
  Country: US (occurrence: US)
  Receive Date: 20130710
  Receipt Date: 20130802
  Transmission Date: 20140515
  Serious: No
  Sender: FDA-Public Use
  Company Number: US-PFIZER INC-2013196172

PATIENT
  Age: 68 Year
  Sex: Female
  Weight: 77.1 kg

DRUGS (10)
  1. SUTENT [Suspect]
     Indication: THYROID CANCER METASTATIC
     Dosage: 50 MG, CYCLIC (28 D ON FOLLOWED BY 14 D OFF)
     Route: 048
     Dates: start: 20110801
  2. SUTENT [Suspect]
     Indication: NEOPLASM MALIGNANT
     Dosage: 12.5 MG, 3X/DAY
     Route: 048
     Dates: start: 201306
  3. SUTENT [Suspect]
     Dosage: 37.5 MG, 1X/DAY
     Dates: start: 20130616
  4. SYNTHROID [Concomitant]
     Dosage: UNK
  5. GLIBURIDE/METFORMIN HYDROCHLORIDE [Concomitant]
     Dosage: UNK
  6. PRILOSEC [Concomitant]
     Dosage: UNK
  7. TOPROL XL [Concomitant]
     Dosage: UNK
  8. XANAX [Concomitant]
     Dosage: 0.25 MG, AS NEEDED
  9. HYDROCODONE [Concomitant]
     Dosage: 5 / 500 MG, AS NEEDED
  10. OXYCODONE [Concomitant]
     Dosage: UNK, AS NEEDED

REACTIONS (21)
  - Product colour issue [Not Recovered/Not Resolved]
  - Blister [Unknown]
  - Balance disorder [Unknown]
  - Fall [Unknown]
  - Head injury [Unknown]
  - Headache [Not Recovered/Not Resolved]
  - Pain [Not Recovered/Not Resolved]
  - Skeletal injury [Unknown]
  - Musculoskeletal chest pain [Recovering/Resolving]
  - Chest pain [Recovering/Resolving]
  - Off label use [Unknown]
  - Mood swings [Recovered/Resolved]
  - Confusional state [Recovered/Resolved]
  - Dry mouth [Recovered/Resolved]
  - Skin discolouration [Recovered/Resolved]
  - Rash [Not Recovered/Not Resolved]
  - Pain in extremity [Not Recovered/Not Resolved]
  - Feeling hot [Not Recovered/Not Resolved]
  - Peripheral coldness [Not Recovered/Not Resolved]
  - Malaise [Not Recovered/Not Resolved]
  - Drug intolerance [Unknown]
